FAERS Safety Report 26173869 (Version 1)
Quarter: 2025Q4

REPORT INFORMATION
  Report Type: Spontaneous
  Country: US (occurrence: US)
  Receive Date: 20251218
  Receipt Date: 20251218
  Transmission Date: 20260118
  Serious: Yes (Hospitalization, Other)
  Sender: RANBAXY
  Company Number: US-SUN PHARMACEUTICAL INDUSTRIES LTD-2025R1-542072

PATIENT
  Age: 71 Year
  Sex: Male

DRUGS (2)
  1. ALLOPURINOL [Suspect]
     Active Substance: ALLOPURINOL
     Indication: Gout
     Dosage: UNK
     Route: 065
  2. PEGLOTICASE [Concomitant]
     Active Substance: PEGLOTICASE
     Indication: Gout
     Dosage: UNK
     Route: 065

REACTIONS (2)
  - Vasculitis [Recovered/Resolved]
  - Acute kidney injury [Recovering/Resolving]
